FAERS Safety Report 8740574 (Version 2)
Quarter: 2013Q4

REPORT INFORMATION
  Report Type: Spontaneous
  Country: US (occurrence: US)
  Receive Date: 20120823
  Receipt Date: 20131101
  Transmission Date: 20140711
  Serious: No
  Sender: FDA-Public Use
  Company Number: US-009507513-1208USA008458

PATIENT
  Age: 60 Year
  Sex: Male

DRUGS (3)
  1. PEGINTRON [Suspect]
     Indication: HEPATITIS C
     Dosage: 150 MICROGRAM, QW
     Route: 058
     Dates: start: 20120818
  2. VICTRELIS [Suspect]
     Route: 048
  3. REBETOL [Suspect]
     Route: 048

REACTIONS (5)
  - Hyperhidrosis [Recovering/Resolving]
  - Injection site pain [Recovering/Resolving]
  - Chest pain [Recovering/Resolving]
  - Chills [Recovering/Resolving]
  - Abdominal pain lower [Recovering/Resolving]
